FAERS Safety Report 10180054 (Version 3)
Quarter: 2014Q2

REPORT INFORMATION
  Report Type: Report from Study
  Country: US (occurrence: US)
  Receive Date: 20140519
  Receipt Date: 20140530
  Transmission Date: 20141212
  Serious: Yes (Hospitalization)
  Sender: FDA-Public Use
  Company Number: US-ACTELION-A-NJ2014-97826

PATIENT
  Age: 51 Year
  Sex: Female

DRUGS (3)
  1. VELETRI [Suspect]
     Indication: PULMONARY ARTERIAL HYPERTENSION
     Dosage: 10.5 UNK, UNK
     Route: 042
     Dates: start: 20140304
  2. ADCIRCA [Concomitant]
     Dosage: 40 MG, QD
     Dates: start: 20140128
  3. COUMADIN [Concomitant]
     Dosage: 1.25 MG, UNK
     Dates: start: 20130926

REACTIONS (8)
  - International normalised ratio increased [Unknown]
  - Catheter site haemorrhage [Unknown]
  - Nausea [Unknown]
  - Diarrhoea [Unknown]
  - Headache [Unknown]
  - Chest discomfort [Unknown]
  - Myalgia [Unknown]
  - Influenza like illness [Unknown]
